FAERS Safety Report 7901395-4 (Version None)
Quarter: 2011Q4

REPORT INFORMATION
  Report Type: 
  Country: None (occurrence: None)
  Receive Date: 20111108
  Receipt Date: 20111102
  Transmission Date: 20120403
  Serious: No
  Sender: FDA-Public Use
  Company Number: US-PFIZER INC-2011269528

PATIENT
  Sex: Female
  Weight: 78.458 kg

DRUGS (2)
  1. LEVOXYL [Concomitant]
     Indication: HYPOTHYROIDISM
  2. INDERAL LA [Suspect]
     Dosage: 120 MG, 1X/DAY
     Route: 048

REACTIONS (3)
  - DIZZINESS [None]
  - SENSATION OF HEAVINESS [None]
  - FATIGUE [None]
